FAERS Safety Report 5135661-5 (Version None)
Quarter: 2006Q4

REPORT INFORMATION
  Report Type: 
  Country: None (occurrence: None)
  Receive Date: 20061026
  Receipt Date: 20061018
  Transmission Date: 20070319
  Serious: Yes (Hospitalization)
  Sender: FDA-Public Use
  Company Number: US-ROCHE-468043

PATIENT
  Sex: Female

DRUGS (7)
  1. XELODA [Suspect]
     Route: 048
     Dates: start: 20060926, end: 20061015
  2. LASIX [Concomitant]
  3. K-TAB [Concomitant]
  4. DIGOXIN [Concomitant]
  5. ALBUTEROL [Concomitant]
     Route: 055
  6. COMPAZINE [Concomitant]
  7. UNSPECIFIED DRUG [Concomitant]
     Dosage: DRUG NAME REPORTED AS ^SENINAL^

REACTIONS (2)
  - SWOLLEN TONGUE [None]
  - TONGUE PARALYSIS [None]
